FAERS Safety Report 15795333 (Version 2)
Quarter: 2019Q2

REPORT INFORMATION
  Report Type: Spontaneous
  Country: US (occurrence: US)
  Receive Date: 20190107
  Receipt Date: 20190402
  Transmission Date: 20190711
  Serious: Yes (Hospitalization)
  Sender: FDA-Public Use
  Company Number: US-VIFOR (INTERNATIONAL) INC.-VIT-2018-12704

PATIENT
  Age: 49 Year
  Sex: Male

DRUGS (22)
  1. BRILINTA [Concomitant]
     Active Substance: TICAGRELOR
  2. ASPIRIN. [Concomitant]
     Active Substance: ASPIRIN
  3. DOCUSATE SODIUM. [Concomitant]
     Active Substance: DOCUSATE SODIUM
  4. LOPRESSOR [Concomitant]
     Active Substance: METOPROLOL TARTRATE
  5. TRICOR [Concomitant]
     Active Substance: FENOFIBRATE
  6. GLUCAGON EMERGENCY [Concomitant]
  7. TUMS [Concomitant]
     Active Substance: CALCIUM CARBONATE
  8. EFFEXOR XR [Concomitant]
     Active Substance: VENLAFAXINE HYDROCHLORIDE
  9. RENAL [Concomitant]
  10. RENVELA [Concomitant]
     Active Substance: SEVELAMER CARBONATE
  11. LIPITOR [Concomitant]
     Active Substance: ATORVASTATIN CALCIUM
  12. MIRALAX [Concomitant]
     Active Substance: POLYETHYLENE GLYCOL 3350
  13. SENSIPAR [Concomitant]
     Active Substance: CINACALCET HYDROCHLORIDE
  14. VELTASSA [Suspect]
     Active Substance: PATIROMER
     Indication: HYPERKALAEMIA
     Route: 048
     Dates: start: 20160924
  15. FOLIC ACID. [Concomitant]
     Active Substance: FOLIC ACID
  16. LANTUS [Concomitant]
     Active Substance: INSULIN GLARGINE
  17. METAMUCIL SMOOTH TEXTURE [Concomitant]
  18. NOVOLOG [Concomitant]
     Active Substance: INSULIN ASPART
  19. PHOSLO [Concomitant]
     Active Substance: CALCIUM ACETATE
  20. VELTASSA [Suspect]
     Active Substance: PATIROMER
     Indication: END STAGE RENAL DISEASE
  21. MINOXIDIL. [Concomitant]
     Active Substance: MINOXIDIL
  22. NITROGLYCERIN. [Concomitant]
     Active Substance: NITROGLYCERIN

REACTIONS (1)
  - Hospitalisation [Unknown]

NARRATIVE: CASE EVENT DATE: 20181124
